FAERS Safety Report 5173633-5 (Version None)
Quarter: 2006Q4

REPORT INFORMATION
  Report Type: 
  Country: None (occurrence: None)
  Receive Date: 20061206
  Receipt Date: 20061121
  Transmission Date: 20070319
  Serious: Yes (Other)
  Sender: FDA-Public Use
  Company Number: 2006US003448

PATIENT
  Age: 52 Year
  Sex: Female
  Weight: 60 kg

DRUGS (10)
  1. ALOXI [Suspect]
     Indication: PROPHYLAXIS OF NAUSEA AND VOMITING
     Dosage: SEE IMAGE
     Route: 042
     Dates: start: 20061004, end: 20061004
  2. ALOXI [Suspect]
     Indication: PROPHYLAXIS OF NAUSEA AND VOMITING
     Dosage: SEE IMAGE
     Route: 042
     Dates: start: 20061013, end: 20061013
  3. DECADRON [Suspect]
  4. CISPLATIN [Concomitant]
  5. GEMZAR [Concomitant]
  6. COLACE (DOCUSATE SODIUM) [Concomitant]
  7. MIRALAX [Concomitant]
  8. LACTULOSE [Concomitant]
  9. DULCOLAX [Concomitant]
  10. MAGNESIUM CITRATE [Concomitant]

REACTIONS (6)
  - ABDOMINAL PAIN UPPER [None]
  - CHEST PAIN [None]
  - CONDITION AGGRAVATED [None]
  - CONSTIPATION [None]
  - INTESTINAL OBSTRUCTION [None]
  - THERAPY NON-RESPONDER [None]
